FAERS Safety Report 8780297 (Version 1)
Quarter: 2012Q4

REPORT INFORMATION
  Report Type: Spontaneous
  Country: US (occurrence: None)
  Receive Date: 20120905
  Receipt Date: 20120905
  Transmission Date: 20130627
  Serious: Yes (Death)
  Sender: FDA-Public Use
  Company Number: None

PATIENT
  Age: 60 Year
  Sex: Male
  Weight: 79.83 kg

DRUGS (1)
  1. RIFAMPICIN [Suspect]
     Indication: MULTIPLE SYSTEM ATROPHY
     Dates: start: 20120216, end: 20120624

REACTIONS (8)
  - Hernia repair [None]
  - Procedural pain [None]
  - Vomiting [None]
  - Depressed level of consciousness [None]
  - Brain death [None]
  - Circulatory collapse [None]
  - Myocardial infarction [None]
  - Multi-organ failure [None]
